FAERS Safety Report 9161653 (Version 2)
Quarter: 2013Q1

REPORT INFORMATION
  Report Type: Spontaneous
  Country: BR (occurrence: BR)
  Receive Date: 20130314
  Receipt Date: 20130321
  Transmission Date: 20140127
  Serious: Yes (Other)
  Sender: FDA-Public Use
  Company Number: BR-AMGEN-BRASP2013016690

PATIENT
  Age: 45 Year
  Sex: Male
  Weight: 92 kg

DRUGS (7)
  1. ENBREL [Suspect]
     Indication: PSORIATIC ARTHROPATHY
     Dosage: 25 MG, UNK
  2. ENBREL [Suspect]
     Dosage: 50 MG, UNK
     Dates: end: 2012
  3. CAPTOPRIL [Concomitant]
     Dosage: UNK
  4. HYDROCHLOROTHIAZIDE [Concomitant]
     Dosage: UNK
  5. AMLODIPINE [Concomitant]
     Dosage: UNK
  6. METFORMIN [Concomitant]
     Dosage: UNK
  7. DICLOFENAC [Concomitant]
     Dosage: UNK

REACTIONS (3)
  - Kidney enlargement [Unknown]
  - Diabetes mellitus [Unknown]
  - Urinary tract infection [Unknown]
